FAERS Safety Report 16914774 (Version 1)
Quarter: 2019Q4

REPORT INFORMATION
  Report Type: Spontaneous
  Country: US (occurrence: US)
  Receive Date: 20191014
  Receipt Date: 20191014
  Transmission Date: 20200122
  Serious: Yes (Other)
  Sender: FDA-Public Use
  Company Number: US-IPSEN BIOPHARMACEUTICALS, INC.-2019-18604

PATIENT
  Age: 60 Year
  Sex: Female

DRUGS (12)
  1. DYSPORT [Suspect]
     Active Substance: ABOBOTULINUMTOXINA
     Indication: SKIN WRINKLING
     Dosage: DOSE NOT REPORTED
     Route: 030
     Dates: start: 20190730, end: 20190730
  2. DYSPORT [Suspect]
     Active Substance: ABOBOTULINUMTOXINA
     Indication: SKIN WRINKLING
  3. VALIUM [Concomitant]
     Active Substance: DIAZEPAM
  4. SCULPTRA [Suspect]
     Active Substance: POLYLACTIDE, L-
     Indication: SKIN WRINKLING
     Dosage: 2 CC 2 % LIDOCAINE ?8 ML EACH ON RIGHT AND LEFT SIDE WITH 26 GAUGE CANNULA
     Dates: start: 20190807, end: 20190807
  5. SCULPTRA [Suspect]
     Active Substance: POLYLACTIDE, L-
     Indication: SKIN WRINKLING
  6. SCULPTRA [Suspect]
     Active Substance: POLYLACTIDE, L-
     Indication: SKIN WRINKLING
  7. TYLENOL [Concomitant]
     Active Substance: ACETAMINOPHEN
  8. DYSPORT [Suspect]
     Active Substance: ABOBOTULINUMTOXINA
     Indication: SKIN WRINKLING
  9. DYSPORT [Suspect]
     Active Substance: ABOBOTULINUMTOXINA
     Indication: SKIN WRINKLING
  10. DYSPORT [Suspect]
     Active Substance: ABOBOTULINUMTOXINA
     Indication: OFF LABEL USE
  11. SCULPTRA [Suspect]
     Active Substance: POLYLACTIDE, L-
     Indication: SKIN WRINKLING
  12. DYSPORT [Suspect]
     Active Substance: ABOBOTULINUMTOXINA
     Indication: SKIN WRINKLING

REACTIONS (5)
  - Off label use [Unknown]
  - Off label use [Unknown]
  - Brow ptosis [Recovering/Resolving]
  - Facial paralysis [Recovered/Resolved]
  - Cerebrovascular accident [Unknown]

NARRATIVE: CASE EVENT DATE: 20190730
